FAERS Safety Report 18816774 (Version 1)
Quarter: 2021Q1

REPORT INFORMATION
  Report Type: Spontaneous
  Country: BE (occurrence: BE)
  Receive Date: 20210201
  Receipt Date: 20210201
  Transmission Date: 20210419
  Serious: Yes (Other)
  Sender: FDA-Public Use
  Company Number: BE-ACCORD-215239

PATIENT
  Sex: Male
  Weight: 90 kg

DRUGS (1)
  1. CARBOPLATIN ACCORD [Suspect]
     Active Substance: CARBOPLATIN
     Indication: GASTROINTESTINAL ADENOCARCINOMA
     Dosage: STRENGTH:600MG/60ML
     Route: 042
     Dates: start: 20190902, end: 20201130

REACTIONS (2)
  - Pruritus [Recovered/Resolved]
  - Restlessness [Recovered/Resolved]

NARRATIVE: CASE EVENT DATE: 20201130
